FAERS Safety Report 23193058 (Version 2)
Quarter: 2024Q4

REPORT INFORMATION
  Report Type: Spontaneous
  Country: US (occurrence: US)
  Receive Date: 20231116
  Receipt Date: 20241011
  Transmission Date: 20250114
  Serious: No
  Sender: TEVA
  Company Number: US-TEVA-2023-US-2941142

PATIENT
  Age: 23 Year
  Sex: Female

DRUGS (2)
  1. AJOVY [Suspect]
     Active Substance: FREMANEZUMAB-VFRM
     Indication: Migraine
     Route: 065
  2. AJOVY [Suspect]
     Active Substance: FREMANEZUMAB-VFRM

REACTIONS (4)
  - Arthralgia [Recovered/Resolved]
  - Drug ineffective [Unknown]
  - Myalgia [Unknown]
  - Insomnia [Unknown]
